FAERS Safety Report 17560618 (Version 3)
Quarter: 2020Q3

REPORT INFORMATION
  Report Type: Report from Study
  Country: IT (occurrence: IT)
  Receive Date: 20200319
  Receipt Date: 20200728
  Transmission Date: 20201102
  Serious: Yes (Hospitalization, Other)
  Sender: FDA-Public Use
  Company Number: IT-CELGENEUS-ITA-20200202289

PATIENT
  Age: 84 Year
  Sex: Female
  Weight: 70 kg

DRUGS (21)
  1. AZACITIDINE. [Suspect]
     Active Substance: AZACITIDINE
     Dosage: 127.5 MILLIGRAM
     Route: 058
     Dates: start: 20200224, end: 20200228
  2. LEVOFLOXACIN. [Concomitant]
     Active Substance: LEVOFLOXACIN
     Indication: PRODUCT USED FOR UNKNOWN INDICATION
     Dosage: 500 MILLIGRAM
     Route: 048
     Dates: start: 20200111, end: 20200115
  3. CLAVULANIC ACID [Concomitant]
     Active Substance: CLAVULANIC ACID
     Indication: PRODUCT USED FOR UNKNOWN INDICATION
     Route: 065
  4. AG 120 [Suspect]
     Active Substance: IVOSIDENIB
     Dosage: 500 MILLIGRAM
     Route: 048
     Dates: start: 20200210, end: 20200420
  5. AZACITIDINE. [Suspect]
     Active Substance: AZACITIDINE
     Indication: ACUTE MYELOID LEUKAEMIA
     Dosage: 127.5 MILLIGRAM
     Route: 058
     Dates: start: 20200123, end: 20200125
  6. AZACITIDINE. [Suspect]
     Active Substance: AZACITIDINE
     Dosage: 127.5 MILLIGRAM
     Route: 058
     Dates: start: 20200127, end: 20200129
  7. AG 120 [Suspect]
     Active Substance: IVOSIDENIB
     Dosage: 500 MILLIGRAM
     Route: 048
     Dates: start: 20200127, end: 20200129
  8. AZACITIDINE. [Suspect]
     Active Substance: AZACITIDINE
     Dosage: 127.5 MILLIGRAM
     Route: 058
     Dates: start: 20200323, end: 20200327
  9. AZACITIDINE. [Suspect]
     Active Substance: AZACITIDINE
     Dosage: 127.5 MILLIGRAM
     Route: 058
     Dates: start: 20200330, end: 20200331
  10. AMOXICILLIN. [Concomitant]
     Active Substance: AMOXICILLIN
     Indication: PRODUCT USED FOR UNKNOWN INDICATION
     Route: 065
  11. AZACITIDINE. [Suspect]
     Active Substance: AZACITIDINE
     Dosage: 127.5 MILLIGRAM
     Route: 058
     Dates: start: 20200302, end: 20200303
  12. AZACITIDINE. [Suspect]
     Active Substance: AZACITIDINE
     Dosage: 127.5 MILLIGRAM
     Route: 058
     Dates: start: 20200420, end: 20200420
  13. EUTIROX [Concomitant]
     Active Substance: LEVOTHYROXINE SODIUM
     Indication: PRODUCT USED FOR UNKNOWN INDICATION
     Dosage: 100 MICROGRAM
     Route: 048
     Dates: start: 1990
  14. CALCIUM CARBONATE. [Concomitant]
     Active Substance: CALCIUM CARBONATE
     Indication: PRODUCT USED FOR UNKNOWN INDICATION
     Dosage: 1000 MILLIGRAM
     Route: 048
  15. ENALAPRIL MALEATE. [Concomitant]
     Active Substance: ENALAPRIL MALEATE
     Indication: PRODUCT USED FOR UNKNOWN INDICATION
     Dosage: 5 MILLIGRAM
     Route: 048
  16. OMEPRAZOLE. [Concomitant]
     Active Substance: OMEPRAZOLE
     Indication: ACUTE MYELOID LEUKAEMIA
     Dosage: 20 MILLIGRAM
     Route: 048
  17. AG 120 [Suspect]
     Active Substance: IVOSIDENIB
     Dosage: 250 MILLIGRAM
     Route: 048
     Dates: start: 20200518, end: 20200712
  18. AZACITIDINE. [Suspect]
     Active Substance: AZACITIDINE
     Dosage: 127.5 MILLIGRAM
     Route: 058
     Dates: start: 20200518, end: 20200527
  19. AZACITIDINE. [Suspect]
     Active Substance: AZACITIDINE
     Dosage: 127.5 MILLIGRAM
     Route: 058
     Dates: start: 20200615, end: 20200623
  20. ARMOLIPID [Concomitant]
     Indication: PRODUCT USED FOR UNKNOWN INDICATION
     Dosage: 1 DOSAGE FORMS
     Route: 048
  21. AG 120 [Suspect]
     Active Substance: IVOSIDENIB
     Indication: ACUTE MYELOID LEUKAEMIA
     Dosage: 500 MILLIGRAM
     Route: 048
     Dates: start: 20200123, end: 20200125

REACTIONS (3)
  - Pneumonitis [Recovered/Resolved]
  - Rash [Recovered/Resolved]
  - Differentiation syndrome [Recovered/Resolved]

NARRATIVE: CASE EVENT DATE: 20200125
